FAERS Safety Report 10206014 (Version 1)
Quarter: 2014Q2

REPORT INFORMATION
  Report Type: Spontaneous
  Country: GB (occurrence: None)
  Receive Date: 20140527
  Receipt Date: 20140527
  Transmission Date: 20141212
  Serious: Yes (Hospitalization)
  Sender: FDA-Public Use
  Company Number: FK201401930

PATIENT
  Age: 71 Year
  Sex: Female

DRUGS (3)
  1. FLUOROURACIL [Suspect]
     Indication: PANCREATIC CARCINOMA METASTATIC
  2. OXALIPLATIN (OXALIPLATIN) [Concomitant]
  3. IRINOTECAN (IRINOTECAN) [Concomitant]

REACTIONS (12)
  - Neutropenic sepsis [None]
  - Tachycardia [None]
  - Orthostatic hypotension [None]
  - Nausea [None]
  - Vomiting [None]
  - Diarrhoea [None]
  - Dehydration [None]
  - Mucosal inflammation [None]
  - Thrombocytopenia [None]
  - Melaena [None]
  - Alopecia [None]
  - Weight decreased [None]
